FAERS Safety Report 11078494 (Version 1)
Quarter: 2015Q2

REPORT INFORMATION
  Report Type: Spontaneous
  Country: US (occurrence: None)
  Receive Date: 20150429
  Receipt Date: 20150429
  Transmission Date: 20150821
  Serious: No
  Sender: FDA-Public Use
  Company Number: None

PATIENT
  Age: 73 Year
  Sex: Female
  Weight: 108.86 kg

DRUGS (11)
  1. LDN [Concomitant]
  2. MAGNESIUM MALATE [Concomitant]
  3. FISH OIL [Concomitant]
     Active Substance: FISH OIL
  4. SUPREP BOWEL PREP [Suspect]
     Active Substance: MAGNESIUM SULFATE\POTASSIUM SULFATE\SODIUM SULFATE
     Indication: BOWEL PREPARATION
     Dosage: 7 PM 2 AM BY MOUTH
     Route: 048
     Dates: start: 20150409, end: 20150410
  5. UBIQUINOL [Concomitant]
  6. ARMOUR THYROID [Concomitant]
     Active Substance: THYROID, PORCINE\THYROID, UNSPECIFIED
  7. MELATONIN [Concomitant]
     Active Substance: MELATONIN
  8. MULTI VITAMIN [Concomitant]
     Active Substance: VITAMINS
  9. SUPREP BOWEL PREP [Suspect]
     Active Substance: MAGNESIUM SULFATE\POTASSIUM SULFATE\SODIUM SULFATE
     Indication: COLONOSCOPY
     Dosage: 7 PM 2 AM BY MOUTH
     Route: 048
     Dates: start: 20150409, end: 20150410
  10. VITAMIN D [Concomitant]
     Active Substance: CHOLECALCIFEROL
  11. TART CHERRY [Concomitant]

REACTIONS (2)
  - Diarrhoea [None]
  - Muscle spasms [None]

NARRATIVE: CASE EVENT DATE: 20150411
